FAERS Safety Report 19271695 (Version 5)
Quarter: 2022Q3

REPORT INFORMATION
  Report Type: Spontaneous
  Country: GB (occurrence: GB)
  Receive Date: 20210519
  Receipt Date: 20220704
  Transmission Date: 20221027
  Serious: Yes (Life-Threatening, Hospitalization)
  Sender: FDA-Public Use
  Company Number: GB-MLMSERVICE-20210429-2863568-1

PATIENT
  Age: 30 Year
  Sex: Female

DRUGS (1)
  1. ACETAMINOPHEN [Suspect]
     Active Substance: ACETAMINOPHEN
     Indication: Product used for unknown indication
     Dosage: ; IN TOTAL
     Route: 048

REACTIONS (16)
  - Hypoglycaemia [Recovering/Resolving]
  - Hypotension [Recovering/Resolving]
  - Acidosis [Recovering/Resolving]
  - Coagulopathy [Recovering/Resolving]
  - Acute hepatic failure [Recovering/Resolving]
  - Hyperlactacidaemia [Recovering/Resolving]
  - Overdose [Unknown]
  - Platelet count decreased [Recovering/Resolving]
  - Heart rate increased [Recovering/Resolving]
  - White blood cell count increased [Recovering/Resolving]
  - Blood sodium decreased [Recovering/Resolving]
  - Blood urea increased [Recovering/Resolving]
  - Blood creatinine increased [Recovering/Resolving]
  - Blood phosphorus increased [Recovering/Resolving]
  - Ammonia increased [Recovering/Resolving]
  - C-reactive protein increased [Recovering/Resolving]
